FAERS Safety Report 18574253 (Version 2)
Quarter: 2021Q1

REPORT INFORMATION
  Report Type: Spontaneous
  Country: US (occurrence: US)
  Receive Date: 20201203
  Receipt Date: 20210324
  Transmission Date: 20210419
  Serious: Yes (Hospitalization, Other)
  Sender: FDA-Public Use
  Company Number: US-DRREDDYS-USA/USA/20/0129686

PATIENT
  Age: 59 Year
  Sex: Male

DRUGS (6)
  1. NYSTATIN. [Concomitant]
     Active Substance: NYSTATIN
     Indication: PROPHYLAXIS
     Dosage: SWISH/SWALLOW
     Route: 048
  2. SULFAMETHOXAZOLE 400 MG, TRIMETHOPRIM 80 MG [Concomitant]
     Indication: PROPHYLAXIS
     Dosage: SULFAMETHOXAZOLE 400 MG TRIMETHOPRIM 80 MG
  3. MYCOPHENOLIC ACID. [Suspect]
     Active Substance: MYCOPHENOLIC ACID
     Indication: IMMUNOSUPPRESSANT DRUG THERAPY
  4. VALGANCICLOVIR. [Concomitant]
     Active Substance: VALGANCICLOVIR
     Indication: PROPHYLAXIS
  5. SULFAMETHOXAZOLE 400 MG, TRIMETHOPRIM 80 MG [Concomitant]
     Dosage: TRIMETHOPRIM 80 MG
  6. TACROLIMUS. [Suspect]
     Active Substance: TACROLIMUS
     Indication: IMMUNOSUPPRESSANT DRUG THERAPY

REACTIONS (2)
  - Fungal infection [Recovering/Resolving]
  - Granulomatous dermatitis [Recovering/Resolving]
